FAERS Safety Report 5505541-1 (Version None)
Quarter: 2007Q4

REPORT INFORMATION
  Report Type: 
  Country: None (occurrence: None)
  Receive Date: 20071102
  Receipt Date: 20071024
  Transmission Date: 20080405
  Serious: Yes (Hospitalization)
  Sender: FDA-Public Use
  Company Number: US-SHR-US-2007-037612

PATIENT
  Age: 71 Year
  Sex: Male
  Weight: 80.726 kg

DRUGS (18)
  1. BETASERON [Suspect]
     Indication: MULTIPLE SCLEROSIS
     Dosage: 8 MIU, EVERY 2D
     Route: 058
     Dates: start: 19961014
  2. BETASERON [Suspect]
     Dosage: 2 MIU, EVERY 2D
     Route: 058
  3. COUMADIN [Concomitant]
     Dosage: 4 MG, UNK
     Route: 048
     Dates: start: 20000101
  4. NEXIUM [Concomitant]
     Dosage: 40 MG/D, UNK
     Route: 048
     Dates: start: 20050101
  5. ASPIRIN [Concomitant]
     Dosage: 81 MG/D, UNK
     Route: 048
     Dates: start: 20000101
  6. LASIX [Concomitant]
     Dosage: 40 MG, 2X/DAY
     Route: 048
  7. RAZADYNE [Concomitant]
     Dosage: 12 MG/D, UNK
     Route: 048
  8. ATIVAN [Concomitant]
     Dosage: .5 MG, 2X/DAY
     Route: 048
  9. REGLAN [Concomitant]
     Dosage: 2.5 MG, 4X/DAY
     Route: 048
  10. VITAMIN CAP [Concomitant]
     Dosage: UNK, 1X/DAY
  11. PRILOSEC [Concomitant]
     Dosage: 40 MG, 1X/DAY
  12. LUNESTA [Concomitant]
     Dosage: 2 MG, BED T.
  13. PLENDIL [Concomitant]
     Dosage: 2.5 MG, 2X/DAY
  14. DILANTIN [Concomitant]
     Dosage: 200 MG, 2X/DAY
  15. SOTALOL HYDROCHLORIDE [Concomitant]
     Dosage: 80 MG/D, UNK
  16. LANTUS [Concomitant]
     Dosage: 26 IU, 1X/DAY
     Route: 058
  17. REGULAR INSULIN [Concomitant]
     Dosage: UNK, 3X/DAY
  18. VANCOMYCIN [Concomitant]
     Dosage: 1500 MG/D, UNK
     Route: 042
     Dates: start: 20071005, end: 20071014

REACTIONS (3)
  - INFECTION [None]
  - INJECTION SITE CELLULITIS [None]
  - THROMBOPHLEBITIS [None]
